FAERS Safety Report 23349154 (Version 3)
Quarter: 2024Q1

REPORT INFORMATION
  Report Type: Spontaneous
  Country: DE (occurrence: DE)
  Receive Date: 20231229
  Receipt Date: 20240103
  Transmission Date: 20240410
  Serious: Yes (Hospitalization)
  Sender: FDA-Public Use
  Company Number: DE-CHIESI-2023CHF06956

PATIENT
  Sex: Male

DRUGS (1)
  1. ELFABRIO [Suspect]
     Active Substance: PEGUNIGALSIDASE ALFA-IWXJ
     Indication: Fabry^s disease
     Dosage: UNK
     Route: 042
     Dates: start: 20231124

REACTIONS (1)
  - Intracranial aneurysm [Not Recovered/Not Resolved]
